FAERS Safety Report 13491467 (Version 3)
Quarter: 2018Q2

REPORT INFORMATION
  Report Type: Report from Study
  Country: US (occurrence: US)
  Receive Date: 20170427
  Receipt Date: 20180612
  Transmission Date: 20180711
  Serious: Yes (Hospitalization)
  Sender: FDA-Public Use
  Company Number: PHHO2017US007202

PATIENT
  Age: 69 Year
  Sex: Female
  Weight: 63 kg

DRUGS (14)
  1. KISQALI [Suspect]
     Active Substance: RIBOCICLIB
     Dosage: 400 MG, QD
     Route: 048
     Dates: start: 20150427, end: 20170303
  2. KISQALI [Suspect]
     Active Substance: RIBOCICLIB
     Dosage: 400 MG, QD
     Route: 048
     Dates: start: 20170801, end: 20170813
  3. NORCO [Concomitant]
     Active Substance: ACETAMINOPHEN\HYDROCODONE BITARTRATE
     Indication: CANCER PAIN
     Dosage: UNK
     Route: 065
     Dates: start: 20150115
  4. KISQALI [Suspect]
     Active Substance: RIBOCICLIB
     Dosage: 400 MG, QD
     Route: 048
     Dates: start: 20170403, end: 20170423
  5. MS CONTIN [Concomitant]
     Active Substance: MORPHINE SULFATE
     Indication: BONE PAIN
     Dosage: UNK
     Route: 065
     Dates: start: 20150102
  6. LACTULOSE. [Concomitant]
     Active Substance: LACTULOSE
     Indication: CONSTIPATION
     Dosage: UNK
     Route: 065
     Dates: start: 20150109
  7. HYDROCORTISONE. [Concomitant]
     Active Substance: HYDROCORTISONE
     Indication: RASH
     Dosage: UNK
     Route: 065
     Dates: start: 20150316
  8. KISQALI [Suspect]
     Active Substance: RIBOCICLIB
     Indication: BREAST CANCER
     Dosage: 600 MG, QD
     Route: 048
     Dates: start: 20150203, end: 20150322
  9. LEVBID [Concomitant]
     Active Substance: HYOSCYAMINE SULFATE
     Indication: CONSTIPATION
     Dosage: UNK
     Route: 065
     Dates: start: 20150216
  10. ZYRTEC [Concomitant]
     Active Substance: CETIRIZINE HYDROCHLORIDE
     Indication: DERMATITIS
     Dosage: UNK
     Route: 065
     Dates: start: 20161017
  11. KISQALI [Suspect]
     Active Substance: RIBOCICLIB
     Dosage: 400 MG, QD
     Route: 048
     Dates: start: 20170529, end: 20170618
  12. KISQALI [Suspect]
     Active Substance: RIBOCICLIB
     Dosage: 400 MG, QD
     Route: 048
     Dates: start: 20170822, end: 20170910
  13. KISQALI [Suspect]
     Active Substance: RIBOCICLIB
     Dosage: 400 MG, QD
     Route: 048
     Dates: start: 20180205, end: 20180225
  14. COMPARATOR LETROZOLE [Suspect]
     Active Substance: LETROZOLE
     Indication: BREAST CANCER
     Dosage: 2.5 MG/ DAILY
     Route: 048
     Dates: start: 20150203

REACTIONS (1)
  - Pancreatitis [Recovered/Resolved]

NARRATIVE: CASE EVENT DATE: 20170303
